FAERS Safety Report 6710534-2 (Version None)
Quarter: 2010Q2

REPORT INFORMATION
  Report Type: 
  Country: None (occurrence: None)
  Receive Date: 20100430
  Receipt Date: 20100415
  Transmission Date: 20101027
  Serious: Yes (Hospitalization)
  Sender: FDA-Public Use
  Company Number: 2010-1271

PATIENT
  Age: 4 Year
  Sex: Female

DRUGS (1)
  1. INCRELEX [Suspect]
     Indication: RETT'S DISORDER
     Dosage: 0.2 UG/KG (0.2 UG/KG, 1 IN 1 D), SUBCUTANEOUS
     Route: 058
     Dates: start: 20100209, end: 20100413

REACTIONS (3)
  - CLONIC CONVULSION [None]
  - PARTIAL SEIZURES [None]
  - PETIT MAL EPILEPSY [None]
